FAERS Safety Report 13959847 (Version 3)
Quarter: 2018Q2

REPORT INFORMATION
  Report Type: Spontaneous
  Country: US (occurrence: US)
  Receive Date: 20170911
  Receipt Date: 20180508
  Transmission Date: 20180711
  Serious: Yes (Hospitalization)
  Sender: FDA-Public Use
  Company Number: US-DSJP-DSU-2017-136579

PATIENT

DRUGS (2)
  1. BENICAR HCT [Suspect]
     Active Substance: HYDROCHLOROTHIAZIDE\OLMESARTAN MEDOXOMIL
     Indication: PRODUCT USED FOR UNKNOWN INDICATION
     Dosage: 40-25MG, UNK
     Dates: start: 20110413, end: 20170906
  2. BENICAR [Suspect]
     Active Substance: OLMESARTAN MEDOXOMIL
     Indication: PRODUCT USED FOR UNKNOWN INDICATION
     Dosage: 40 MG, QD
     Route: 048
     Dates: start: 20110413, end: 20170906

REACTIONS (6)
  - Weight decreased [Recovered/Resolved]
  - Gastritis [Not Recovered/Not Resolved]
  - Diverticulum intestinal [Unknown]
  - Polyp [Unknown]
  - Dyspepsia [Unknown]
  - Constipation [Unknown]

NARRATIVE: CASE EVENT DATE: 20130314
